FAERS Safety Report 4429957-X (Version None)
Quarter: 2004Q3

REPORT INFORMATION
  Report Type: 
  Country: None (occurrence: None)
  Receive Date: 20040820
  Receipt Date: 20040811
  Transmission Date: 20050211
  Serious: Yes (Other)
  Sender: FDA-Public Use
  Company Number: PHEH2004US08839

PATIENT

DRUGS (2)
  1. ZOMETA [Suspect]
     Route: 042
  2. PAMIDRONATE DISODIUM [Suspect]
     Route: 042

REACTIONS (1)
  - IRITIS [None]
